FAERS Safety Report 23918508 (Version 2)
Quarter: 2024Q3

REPORT INFORMATION
  Report Type: Spontaneous
  Country: DE (occurrence: DE)
  Receive Date: 20240530
  Receipt Date: 20240708
  Transmission Date: 20241016
  Serious: Yes (Other)
  Sender: SANDOZ
  Company Number: DE-ROCHE-3561634

PATIENT
  Age: 33 Year
  Sex: Female
  Weight: 71 kg

DRUGS (10)
  1. NATALIZUMAB [Suspect]
     Active Substance: NATALIZUMAB
     Indication: Relapsing multiple sclerosis
     Dosage: UNK
     Route: 042
     Dates: start: 20191210
  2. NATALIZUMAB [Suspect]
     Active Substance: NATALIZUMAB
     Indication: Relapsing multiple sclerosis
     Dosage: UNK
     Route: 042
     Dates: start: 20191210
  3. CHOLECALCIFEROL [Concomitant]
     Active Substance: CHOLECALCIFEROL
     Indication: Vitamin D deficiency
     Dosage: 1000.000MG
     Route: 065
     Dates: start: 202303
  4. CHOLECALCIFEROL [Concomitant]
     Active Substance: CHOLECALCIFEROL
     Indication: Vitamin D deficiency
     Dosage: 20000.000IU BIW
     Route: 065
     Dates: start: 2013, end: 20220202
  5. FERROUS GLYCINE SULFATE [Concomitant]
     Active Substance: FERROUS GLYCINE SULFATE
     Indication: Prophylaxis
     Dosage: 30.000MG QD
     Route: 065
     Dates: start: 20220208
  6. FOLIC ACID [Concomitant]
     Active Substance: FOLIC ACID
     Indication: Folate deficiency
     Dosage: 5.000MG
     Route: 065
     Dates: start: 20220208
  7. MODERNA COVID-19 VACCINE [Concomitant]
     Active Substance: ELASOMERAN
     Dosage: UNK
     Route: 065
     Dates: start: 20210607, end: 20210607
  8. MODERNA COVID-19 VACCINE [Concomitant]
     Active Substance: ELASOMERAN
     Indication: COVID-19 prophylaxis
     Route: 065
     Dates: start: 20210510, end: 20210510
  9. PANTOPRAZOLE SODIUM [Concomitant]
     Active Substance: PANTOPRAZOLE SODIUM
     Indication: Abdominal pain upper
     Dosage: UNK
     Route: 065
     Dates: start: 201909, end: 201910
  10. PFIZER-BIONTECH COVID-19 VACCINE [Concomitant]
     Active Substance: TOZINAMERAN
     Indication: COVID-19
     Dosage: QD
     Route: 065
     Dates: start: 20211207, end: 20211207

REACTIONS (2)
  - Abortion missed [Unknown]
  - Maternal exposure before pregnancy [Unknown]

NARRATIVE: CASE EVENT DATE: 20240506
